FAERS Safety Report 24316685 (Version 1)
Quarter: 2024Q3

REPORT INFORMATION
  Report Type: Report from Study
  Country: US (occurrence: US)
  Receive Date: 20240913
  Receipt Date: 20240913
  Transmission Date: 20241016
  Serious: Yes (Death, Hospitalization, Other)
  Sender: TAKEDA
  Company Number: US-TAKEDA-2024TUS090511

PATIENT
  Age: 42 Year
  Sex: Male

DRUGS (6)
  1. TEDUGLUTIDE [Suspect]
     Active Substance: TEDUGLUTIDE
     Indication: Short-bowel syndrome
     Dosage: 0.6 MILLIGRAM, QD
     Route: 042
     Dates: start: 20141001, end: 20210815
  2. TEDUGLUTIDE [Suspect]
     Active Substance: TEDUGLUTIDE
     Indication: Short-bowel syndrome
     Dosage: 0.6 MILLIGRAM, QD
     Route: 042
     Dates: start: 20141001, end: 20210815
  3. TEDUGLUTIDE [Suspect]
     Active Substance: TEDUGLUTIDE
     Indication: Short-bowel syndrome
     Dosage: 0.6 MILLIGRAM, QD
     Route: 042
     Dates: start: 20141001, end: 20210815
  4. TEDUGLUTIDE [Suspect]
     Active Substance: TEDUGLUTIDE
     Indication: Short-bowel syndrome
     Dosage: 0.6 MILLIGRAM, QD
     Route: 042
     Dates: start: 20141001, end: 20210815
  5. LR [Concomitant]
     Indication: Dehydration
     Dosage: 1 LITER
     Route: 042
     Dates: start: 20200918, end: 20200919
  6. CLINDAMYCIN [Concomitant]
     Active Substance: CLINDAMYCIN
     Indication: Pyelonephritis
     Dosage: UNK
     Route: 042
     Dates: start: 202009, end: 202009

REACTIONS (4)
  - COVID-19 [Fatal]
  - Pneumonia [Recovered/Resolved]
  - Deep vein thrombosis [Recovered/Resolved]
  - Vascular device infection [Recovered/Resolved]

NARRATIVE: CASE EVENT DATE: 20210501
